FAERS Safety Report 24540976 (Version 1)
Quarter: 2024Q4

REPORT INFORMATION
  Report Type: Spontaneous
  Country: FR (occurrence: FR)
  Receive Date: 20241023
  Receipt Date: 20241023
  Transmission Date: 20250115
  Serious: Yes (Other)
  Sender: SANDOZ
  Company Number: None

PATIENT
  Age: 61 Year
  Sex: Male

DRUGS (4)
  1. PEMETREXED [Suspect]
     Active Substance: PEMETREXED
     Dosage: ROUTE OF ADMIN (FREE TEXT): INTRAVEINEUX
     Route: 042
     Dates: start: 20230804, end: 20240823
  2. PEMETREXED [Suspect]
     Active Substance: PEMETREXED
     Indication: Lung adenocarcinoma
     Dosage: ROUTE OF ADMIN (FREE TEXT): INTRAVEINEUX
     Route: 065
     Dates: start: 20230804, end: 20240823
  3. PEMBROLIZUMAB [Suspect]
     Active Substance: PEMBROLIZUMAB
     Indication: Lung adenocarcinoma
     Dosage: ROUTE OF ADMIN (FREE TEXT): INTRAVEINEUX
     Route: 042
     Dates: start: 20230804, end: 20240823
  4. PEMBROLIZUMAB [Suspect]
     Active Substance: PEMBROLIZUMAB
     Dosage: ROUTE OF ADMIN (FREE TEXT): INTRAVEINEUX
     Route: 042
     Dates: start: 20230804, end: 20240823

REACTIONS (1)
  - Myocarditis [Not Recovered/Not Resolved]

NARRATIVE: CASE EVENT DATE: 20240926
